FAERS Safety Report 9214048 (Version 1)
Quarter: 2013Q2

REPORT INFORMATION
  Report Type: Spontaneous
  Country: US (occurrence: US)
  Receive Date: 20130405
  Receipt Date: 20130405
  Transmission Date: 20140414
  Serious: Yes (Other)
  Sender: FDA-Public Use
  Company Number: US-PFIZER INC-2013108019

PATIENT
  Age: 72 Year
  Sex: Male
  Weight: 105 kg

DRUGS (6)
  1. LYRICA [Suspect]
     Indication: PAIN IN EXTREMITY
     Dosage: 75 MG, UNK
     Route: 048
     Dates: start: 2012
  2. CYCLOBENZAPRINE [Concomitant]
     Dosage: 10 MG, UNK
  3. OXYCODONE HYDROCHLORIDE W/PARACETAMOL [Concomitant]
     Dosage: 10/325 UNK, UNK
  4. SINGULAIR [Concomitant]
     Indication: HYPERSENSITIVITY
     Dosage: UNK
  5. OMEPRAZOLE [Concomitant]
     Dosage: 40 MG, UNK
  6. AMBIEN [Concomitant]
     Dosage: UNK

REACTIONS (7)
  - Aphagia [Not Recovered/Not Resolved]
  - Activities of daily living impaired [Not Recovered/Not Resolved]
  - Weight increased [Not Recovered/Not Resolved]
  - Decreased appetite [Not Recovered/Not Resolved]
  - Depression [Not Recovered/Not Resolved]
  - Blood cholesterol increased [Not Recovered/Not Resolved]
  - Pain in extremity [Not Recovered/Not Resolved]
